FAERS Safety Report 5738116-X (Version None)
Quarter: 2008Q2

REPORT INFORMATION
  Report Type: 
  Country: None (occurrence: None)
  Receive Date: 20080514
  Receipt Date: 20080505
  Transmission Date: 20081010
  Serious: Yes (Other)
  Sender: FDA-Public Use
  Company Number: FR-AMGEN-US264995

PATIENT
  Sex: Female

DRUGS (2)
  1. ENBREL [Suspect]
     Indication: RHEUMATOID ARTHRITIS
     Route: 058
     Dates: start: 20080114
  2. RIFINAH [Concomitant]
     Dosage: UNKNOWN
     Route: 065
     Dates: start: 20071201, end: 20080229

REACTIONS (12)
  - ARTHRALGIA [None]
  - BALANCE DISORDER [None]
  - BURNING SENSATION [None]
  - ERYTHEMA [None]
  - FALL [None]
  - FATIGUE [None]
  - HEADACHE [None]
  - INJECTION SITE HAEMATOMA [None]
  - INJECTION SITE IRRITATION [None]
  - INJECTION SITE PRURITUS [None]
  - PAIN [None]
  - PRURITUS GENERALISED [None]
